FAERS Safety Report 15260236 (Version 1)
Quarter: 2018Q3

REPORT INFORMATION
  Report Type: Spontaneous
  Country: ZA (occurrence: ZA)
  Receive Date: 20180809
  Receipt Date: 20180809
  Transmission Date: 20181010
  Serious: Yes (Hospitalization)
  Sender: FDA-Public Use
  Company Number: ZA-PFIZER INC-2018275277

PATIENT
  Age: 60 Year
  Sex: Male

DRUGS (6)
  1. ALDACTONE [Suspect]
     Active Substance: SPIRONOLACTONE
     Dosage: 25 MG, UNK
  2. CORDARONE X [Suspect]
     Active Substance: AMIODARONE HYDROCHLORIDE
     Dosage: 200 MG, UNK
  3. CARLOC [Suspect]
     Active Substance: CARVEDILOL
     Dosage: 6.25 MG, UNK
  4. STORWIN [Suspect]
     Active Substance: ROSUVASTATIN CALCIUM
     Dosage: 20 MG, UNK
  5. DISPRIN CARDIOCARE [Suspect]
     Active Substance: ASPIRIN
     Dosage: 100 MG, UNK
  6. FOXAIR [Suspect]
     Active Substance: FLUTICASONE PROPIONATE\SALMETEROL XINAFOATE
     Dosage: UNK

REACTIONS (1)
  - Coronary artery occlusion [Recovered/Resolved]
